FAERS Safety Report 24421311 (Version 1)
Quarter: 2024Q4

REPORT INFORMATION
  Report Type: Spontaneous
  Country: US (occurrence: US)
  Receive Date: 20241010
  Receipt Date: 20241010
  Transmission Date: 20250114
  Serious: Yes (Life-Threatening, Hospitalization)
  Sender: ACCORD
  Company Number: US-MLMSERVICE-20240923-PI203452-00271-1

PATIENT
  Age: 42 Year
  Sex: Female

DRUGS (3)
  1. HYDROXYCHLOROQUINE [Suspect]
     Active Substance: HYDROXYCHLOROQUINE
     Indication: Systemic lupus erythematosus
  2. AZATHIOPRINE [Suspect]
     Active Substance: AZATHIOPRINE
     Indication: Systemic lupus erythematosus
  3. PREDNISONE [Suspect]
     Active Substance: PREDNISONE
     Indication: Systemic lupus erythematosus
     Dosage: LOW DOSE

REACTIONS (8)
  - Pleural effusion [Recovering/Resolving]
  - Cardiac tamponade [Recovering/Resolving]
  - Respiratory distress [Recovering/Resolving]
  - Bacterial pericarditis [Recovering/Resolving]
  - Right ventricular diastolic collapse [Recovering/Resolving]
  - Pneumonia streptococcal [Recovering/Resolving]
  - Purulent pericarditis [Recovering/Resolving]
  - Hypertension [Recovering/Resolving]
